FAERS Safety Report 25542735 (Version 1)
Quarter: 2025Q3

REPORT INFORMATION
  Report Type: Spontaneous
  Country: EU (occurrence: EU)
  Receive Date: 20250711
  Receipt Date: 20250711
  Transmission Date: 20251020
  Serious: Yes (Hospitalization, Other)
  Sender: AUROBINDO
  Company Number: EU-AEMPS-1714738

PATIENT
  Age: 63 Year
  Sex: Male

DRUGS (1)
  1. CEFUROXIME [Suspect]
     Active Substance: CEFUROXIME
     Indication: Respiratory tract infection
     Dosage: 500 MILLIGRAM, TWO TIMES A DAY
     Route: 048
     Dates: start: 20250510, end: 20250516

REACTIONS (2)
  - Drug reaction with eosinophilia and systemic symptoms [Recovered/Resolved]
  - Hepatitis cholestatic [Recovering/Resolving]

NARRATIVE: CASE EVENT DATE: 20250515
